FAERS Safety Report 10774561 (Version 2)
Quarter: 2015Q1

REPORT INFORMATION
  Report Type: Spontaneous
  Country: JP (occurrence: JP)
  Receive Date: 20150209
  Receipt Date: 20150219
  Transmission Date: 20150721
  Serious: Yes (Hospitalization)
  Sender: FDA-Public Use
  Company Number: JP-ROCHE-1533518

PATIENT
  Age: 43 Year
  Sex: Female
  Weight: 69 kg

DRUGS (5)
  1. TS-1 [Concomitant]
     Active Substance: GIMERACIL\OTERACIL\TEGAFUR
     Indication: COLON CANCER
     Dosage: COMPLETED TREATMENT CYCLE NUMBER: 0
     Route: 048
     Dates: start: 20150123, end: 20150126
  2. AVASTIN [Suspect]
     Active Substance: BEVACIZUMAB
     Indication: COLON CANCER
     Route: 041
     Dates: start: 20150123, end: 20150123
  3. ZYPREXA [Concomitant]
     Active Substance: OLANZAPINE
     Route: 048
  4. ELPLAT [Concomitant]
     Active Substance: OXALIPLATIN
     Indication: COLON CANCER
     Dosage: COMPLETED TREATMENT CYCLE NUMBER: 0
     Route: 041
     Dates: start: 20150123, end: 20150123
  5. LUNESTA [Concomitant]
     Active Substance: ESZOPICLONE
     Route: 048

REACTIONS (3)
  - Anastomotic complication [Not Recovered/Not Resolved]
  - Catheter site infection [Not Recovered/Not Resolved]
  - Abdominal abscess [Not Recovered/Not Resolved]

NARRATIVE: CASE EVENT DATE: 20150124
